FAERS Safety Report 18446124 (Version 1)
Quarter: 2020Q4

REPORT INFORMATION
  Report Type: Spontaneous
  Country: US (occurrence: US)
  Receive Date: 20201030
  Receipt Date: 20201030
  Transmission Date: 20210114
  Serious: No
  Sender: FDA-Public Use
  Company Number: US-APOTEX-2020AP019466

PATIENT
  Sex: Female

DRUGS (1)
  1. AZELASTINE HYDROCHLORIDE AND FLUTICASONE PROPIONATE NASAL SPRAY [Suspect]
     Active Substance: AZELASTINE HYDROCHLORIDE\FLUTICASONE PROPIONATE
     Indication: HYPERSENSITIVITY
     Dosage: ONE SPRAY IN EACH NOSTRIL, QD

REACTIONS (2)
  - Product substitution issue [Unknown]
  - Nasal discomfort [Recovering/Resolving]
